FAERS Safety Report 9338462 (Version 2)
Quarter: 2013Q3

REPORT INFORMATION
  Report Type: Spontaneous
  Country: JP (occurrence: JP)
  Receive Date: 20130610
  Receipt Date: 20130801
  Transmission Date: 20140515
  Serious: Yes (Hospitalization, Other)
  Sender: FDA-Public Use
  Company Number: JP-JNJFOC-20130601144

PATIENT
  Age: 76 Year
  Sex: Female
  Weight: 46 kg

DRUGS (8)
  1. XARELTO [Suspect]
     Indication: CEREBROVASCULAR ACCIDENT PROPHYLAXIS
     Route: 048
     Dates: start: 20130523
  2. XARELTO [Suspect]
     Indication: CEREBROVASCULAR ACCIDENT PROPHYLAXIS
     Route: 048
     Dates: start: 201205, end: 201211
  3. XARELTO [Suspect]
     Indication: ATRIAL FIBRILLATION
     Route: 048
     Dates: start: 201205, end: 201211
  4. XARELTO [Suspect]
     Indication: ATRIAL FIBRILLATION
     Route: 048
     Dates: start: 20130523
  5. FEMARA [Concomitant]
     Route: 048
  6. FLUNITRAZEPAM [Concomitant]
     Route: 048
  7. ATELEC [Concomitant]
     Route: 048
  8. TIAPRIDE HYDROCHLORIDE [Concomitant]
     Route: 048

REACTIONS (2)
  - Large intestinal haemorrhage [Recovering/Resolving]
  - Large intestinal haemorrhage [Recovered/Resolved]
